FAERS Safety Report 6318785-6 (Version None)
Quarter: 2009Q3

REPORT INFORMATION
  Report Type: 
  Country: None (occurrence: None)
  Receive Date: 20090820
  Receipt Date: 20090820
  Transmission Date: 20100115
  Serious: Yes (Other)
  Sender: FDA-Public Use
  Company Number: None

PATIENT
  Sex: Male

DRUGS (2)
  1. DILAUDID [Suspect]
     Indication: COMPLEX REGIONAL PAIN SYNDROME
     Dosage: 4MG Q4 HR PO
     Route: 048
     Dates: start: 20090814
  2. DILAUDID [Suspect]
     Indication: PAIN
     Dosage: 4MG Q4 HR PO
     Route: 048
     Dates: start: 20090814

REACTIONS (3)
  - DRY SKIN [None]
  - INADEQUATE ANALGESIA [None]
  - SKIN EXFOLIATION [None]
